FAERS Safety Report 4380634-3 (Version None)
Quarter: 2004Q2

REPORT INFORMATION
  Report Type: 
  Country: None (occurrence: None)
  Receive Date: 20040610
  Receipt Date: 20040317
  Transmission Date: 20050107
  Serious: Yes (Other)
  Sender: FDA-Public Use
  Company Number: A03200400842

PATIENT
  Sex: Male

DRUGS (2)
  1. ELOXATIN [Suspect]
     Indication: CARCINOMA
     Dosage: INTRAVENOUS NOS
     Route: 042
  2. GEMCITABINE [Concomitant]

REACTIONS (1)
  - FACIAL PALSY [None]
